FAERS Safety Report 22678788 (Version 3)
Quarter: 2024Q3

REPORT INFORMATION
  Report Type: Spontaneous
  Country: PL (occurrence: PL)
  Receive Date: 20230706
  Receipt Date: 20240827
  Transmission Date: 20241017
  Serious: Yes (Other)
  Sender: BAUSCH AND LOMB
  Company Number: PL-009507513-2306POL010093

PATIENT
  Sex: Male

DRUGS (88)
  1. DEXAMETHASONE [Suspect]
     Active Substance: DEXAMETHASONE
     Indication: Product used for unknown indication
     Dosage: UNK
     Route: 065
     Dates: start: 20221122, end: 20221122
  2. DEXAMETHASONE [Suspect]
     Active Substance: DEXAMETHASONE
     Dosage: UNK
     Route: 065
     Dates: start: 20230307, end: 20230307
  3. DEXAMETHASONE [Suspect]
     Active Substance: DEXAMETHASONE
     Dosage: UNK
     Route: 065
     Dates: start: 20230103, end: 20230103
  4. DEXAMETHASONE [Suspect]
     Active Substance: DEXAMETHASONE
     Dosage: UNK
     Route: 065
     Dates: start: 20230210, end: 20230210
  5. DEXAMETHASONE [Suspect]
     Active Substance: DEXAMETHASONE
     Dosage: UNK
     Route: 065
     Dates: start: 20230523, end: 20230523
  6. DEXAMETHASONE [Suspect]
     Active Substance: DEXAMETHASONE
     Dosage: UNK
     Route: 065
     Dates: start: 20230429, end: 20230429
  7. CISPLATIN [Suspect]
     Active Substance: CISPLATIN
     Indication: Product used for unknown indication
     Dosage: 70 MG IV
     Route: 042
     Dates: start: 20230524, end: 20230524
  8. CISPLATIN [Suspect]
     Active Substance: CISPLATIN
     Dosage: 60 MG IV
     Route: 042
     Dates: start: 20230525, end: 20230525
  9. CISPLATIN [Suspect]
     Active Substance: CISPLATIN
     Dosage: 200 MG IV
     Route: 042
     Dates: start: 20230307, end: 20230307
  10. CISPLATIN [Suspect]
     Active Substance: CISPLATIN
     Dosage: 70 MG IV
     Route: 042
     Dates: start: 20230430, end: 20230430
  11. CISPLATIN [Suspect]
     Active Substance: CISPLATIN
     Dosage: 200 MG IV
     Route: 042
     Dates: start: 20230210, end: 20230210
  12. CISPLATIN [Suspect]
     Active Substance: CISPLATIN
     Dosage: 60 MG IV
     Route: 042
     Dates: start: 20230501, end: 20230501
  13. CISPLATIN [Suspect]
     Active Substance: CISPLATIN
     Dosage: 70 MG IV
     Route: 042
     Dates: start: 20230429, end: 20230429
  14. CISPLATIN [Suspect]
     Active Substance: CISPLATIN
     Dosage: 200 MG IV
     Route: 042
     Dates: start: 20230103, end: 20230103
  15. CISPLATIN [Suspect]
     Active Substance: CISPLATIN
     Dosage: 70 MG IV
     Route: 042
     Dates: start: 20230523, end: 20230523
  16. CISPLATIN [Suspect]
     Active Substance: CISPLATIN
     Dosage: 200 MG IV
     Route: 042
     Dates: start: 20221122, end: 20221122
  17. CISPLATIN [Suspect]
     Active Substance: CISPLATIN
     Dosage: 70 MG
     Route: 042
     Dates: start: 20230423, end: 20230423
  18. EMEND [Suspect]
     Active Substance: APREPITANT
     Indication: Product used for unknown indication
     Dosage: UNK
     Route: 048
     Dates: start: 20230103, end: 20230103
  19. EMEND [Suspect]
     Active Substance: APREPITANT
     Dosage: UNK
     Route: 048
     Dates: start: 20221122, end: 20221122
  20. EMEND [Suspect]
     Active Substance: APREPITANT
     Dosage: UNK
     Route: 048
     Dates: start: 20230307, end: 20230307
  21. EMEND [Suspect]
     Active Substance: APREPITANT
     Dosage: UNK
     Route: 048
     Dates: start: 20230210, end: 20230210
  22. EMEND [Suspect]
     Active Substance: APREPITANT
     Dosage: UNK
     Route: 048
     Dates: start: 20230523, end: 20230523
  23. EMEND [Suspect]
     Active Substance: APREPITANT
     Dosage: UNK
     Route: 048
     Dates: start: 20230429, end: 20230429
  24. MAGNESIUM [Suspect]
     Active Substance: MAGNESIUM
     Indication: Product used for unknown indication
     Dosage: UNK, MAGNESIUM SULFATE
     Route: 042
     Dates: start: 20230523, end: 20230523
  25. MAGNESIUM [Suspect]
     Active Substance: MAGNESIUM
     Dosage: UNK
     Route: 042
     Dates: start: 20230429, end: 20230429
  26. MAGNESIUM [Suspect]
     Active Substance: MAGNESIUM
     Dosage: UNK
     Route: 042
     Dates: start: 20221122, end: 20221122
  27. MAGNESIUM [Suspect]
     Active Substance: MAGNESIUM
     Dosage: UNK
     Route: 042
     Dates: start: 20230307, end: 20230307
  28. MAGNESIUM [Suspect]
     Active Substance: MAGNESIUM
     Dosage: UNK
     Route: 042
     Dates: start: 20230103, end: 20230103
  29. MAGNESIUM [Suspect]
     Active Substance: MAGNESIUM
     Dosage: UNK
     Route: 042
     Dates: start: 20230210, end: 20230210
  30. ZOFRAN [Suspect]
     Active Substance: ONDANSETRON HYDROCHLORIDE
     Indication: Product used for unknown indication
     Dosage: UNK
     Route: 065
     Dates: start: 20230103, end: 20230103
  31. ZOFRAN [Suspect]
     Active Substance: ONDANSETRON HYDROCHLORIDE
     Dosage: UNK
     Route: 065
     Dates: start: 20221122, end: 20221122
  32. ZOFRAN [Suspect]
     Active Substance: ONDANSETRON HYDROCHLORIDE
     Dosage: UNK
     Route: 065
     Dates: start: 20230307, end: 20230307
  33. ZOFRAN [Suspect]
     Active Substance: ONDANSETRON HYDROCHLORIDE
     Dosage: UNK
     Route: 065
     Dates: start: 20230429, end: 20230429
  34. ZOFRAN [Suspect]
     Active Substance: ONDANSETRON HYDROCHLORIDE
     Dosage: UNK
     Route: 065
     Dates: start: 20230210, end: 20230210
  35. ZOFRAN [Suspect]
     Active Substance: ONDANSETRON HYDROCHLORIDE
     Dosage: UNK
     Route: 065
     Dates: start: 20230523, end: 20230523
  36. ZOFRAN [Suspect]
     Active Substance: ONDANSETRON HYDROCHLORIDE
     Dosage: UNK
     Route: 065
  37. FLUOROURACIL [Suspect]
     Active Substance: FLUOROURACIL
     Indication: Product used for unknown indication
     Dosage: 2000 MG
     Route: 042
     Dates: start: 20230213, end: 20230213
  38. FLUOROURACIL [Suspect]
     Active Substance: FLUOROURACIL
     Dosage: 2000 MG
     Route: 042
     Dates: start: 20230210, end: 20230210
  39. FLUOROURACIL [Suspect]
     Active Substance: FLUOROURACIL
     Dosage: 2000 MG
     Route: 042
     Dates: start: 20221123, end: 20221123
  40. FLUOROURACIL [Suspect]
     Active Substance: FLUOROURACIL
     Dosage: 2000 MG
     Route: 042
     Dates: start: 20221124, end: 20221124
  41. FLUOROURACIL [Suspect]
     Active Substance: FLUOROURACIL
     Dosage: 2000 MG
     Route: 042
     Dates: start: 20230310, end: 20230310
  42. FLUOROURACIL [Suspect]
     Active Substance: FLUOROURACIL
     Dosage: 2000 MG
     Route: 042
     Dates: start: 20230309, end: 20230309
  43. FLUOROURACIL [Suspect]
     Active Substance: FLUOROURACIL
     Dosage: 2000 MG
     Route: 042
     Dates: start: 20230106, end: 20230106
  44. FLUOROURACIL [Suspect]
     Active Substance: FLUOROURACIL
     Dosage: 2000 MG
     Route: 042
     Dates: start: 20230307, end: 20230307
  45. FLUOROURACIL [Suspect]
     Active Substance: FLUOROURACIL
     Dosage: 2000 MG IV
     Route: 042
     Dates: start: 20230103, end: 20230103
  46. FLUOROURACIL [Suspect]
     Active Substance: FLUOROURACIL
     Dosage: 2000 MG
     Route: 042
     Dates: start: 20230105, end: 20230105
  47. FLUOROURACIL [Suspect]
     Active Substance: FLUOROURACIL
     Dosage: 2000 MG
     Route: 042
     Dates: start: 20230104, end: 20230104
  48. FLUOROURACIL [Suspect]
     Active Substance: FLUOROURACIL
     Dosage: 2000 MG
     Route: 042
     Dates: start: 20230212, end: 20230212
  49. FLUOROURACIL [Suspect]
     Active Substance: FLUOROURACIL
     Dosage: 2000 MG (IV, 24 HOURS INFUSION)
     Route: 042
     Dates: start: 20221125, end: 20221125
  50. FLUOROURACIL [Suspect]
     Active Substance: FLUOROURACIL
     Dosage: 2000 MG
     Route: 042
     Dates: start: 20230211, end: 20230211
  51. FLUOROURACIL [Suspect]
     Active Substance: FLUOROURACIL
     Dosage: 2000 MG
     Route: 042
     Dates: start: 20221122, end: 20221122
  52. FLUOROURACIL [Suspect]
     Active Substance: FLUOROURACIL
     Dosage: 2000 MG
     Route: 042
     Dates: start: 20230308, end: 20230308
  53. MANNITOL [Suspect]
     Active Substance: MANNITOL
     Indication: Product used for unknown indication
     Dosage: UNK
     Route: 065
     Dates: start: 20230103, end: 20230103
  54. MANNITOL [Suspect]
     Active Substance: MANNITOL
     Dosage: UNK
     Route: 065
     Dates: start: 20221122, end: 20221122
  55. MANNITOL [Suspect]
     Active Substance: MANNITOL
     Dosage: UNK
     Route: 065
     Dates: start: 20230307, end: 20230307
  56. MANNITOL [Suspect]
     Active Substance: MANNITOL
     Dosage: UNK
     Route: 065
     Dates: start: 20230210, end: 20230210
  57. MANNITOL [Suspect]
     Active Substance: MANNITOL
     Dosage: UNK
     Route: 065
     Dates: start: 20230429, end: 20230429
  58. MANNITOL [Suspect]
     Active Substance: MANNITOL
     Dosage: UNK
     Route: 065
     Dates: start: 20230523, end: 20230523
  59. METOCLOPRAMIDE [Suspect]
     Active Substance: METOCLOPRAMIDE
     Indication: Product used for unknown indication
     Dosage: UNK
     Route: 065
     Dates: start: 20230429, end: 20230429
  60. METOCLOPRAMIDE [Suspect]
     Active Substance: METOCLOPRAMIDE
     Dosage: UNK
     Route: 065
     Dates: start: 20230210, end: 20230210
  61. METOCLOPRAMIDE [Suspect]
     Active Substance: METOCLOPRAMIDE
     Dosage: UNK
     Route: 065
     Dates: start: 20230103, end: 20230103
  62. METOCLOPRAMIDE [Suspect]
     Active Substance: METOCLOPRAMIDE
     Dosage: UNK
     Route: 065
     Dates: start: 20221122, end: 20221122
  63. METOCLOPRAMIDE [Suspect]
     Active Substance: METOCLOPRAMIDE
     Dosage: UNK
     Route: 065
     Dates: start: 20230523, end: 20230523
  64. METOCLOPRAMIDE [Suspect]
     Active Substance: METOCLOPRAMIDE
     Dosage: UNK
     Route: 065
     Dates: start: 20230307, end: 20230307
  65. METOCLOPRAMIDE [Suspect]
     Active Substance: METOCLOPRAMIDE
     Dosage: UNK, METOCLOPRAMIDE HYDROCHLORIDE
     Route: 065
     Dates: start: 20221111, end: 20221111
  66. FUROSEMIDE [Suspect]
     Active Substance: FUROSEMIDE
     Indication: Product used for unknown indication
     Dosage: UNK
     Route: 065
     Dates: start: 20221122, end: 20221122
  67. FUROSEMIDE [Suspect]
     Active Substance: FUROSEMIDE
     Dosage: UNK
     Route: 065
     Dates: start: 20230307, end: 20230307
  68. FUROSEMIDE [Suspect]
     Active Substance: FUROSEMIDE
     Dosage: UNK
     Route: 065
     Dates: start: 20230429, end: 20230429
  69. FUROSEMIDE [Suspect]
     Active Substance: FUROSEMIDE
     Dosage: UNK
     Route: 065
     Dates: start: 20230103, end: 20230103
  70. FUROSEMIDE [Suspect]
     Active Substance: FUROSEMIDE
     Dosage: UNK
     Route: 065
     Dates: start: 20230523, end: 20230523
  71. FUROSEMIDE [Suspect]
     Active Substance: FUROSEMIDE
     Dosage: UNK
     Route: 065
     Dates: start: 20230210, end: 20230210
  72. PEMBROLIZUMAB [Suspect]
     Active Substance: PEMBROLIZUMAB
     Indication: Product used for unknown indication
     Dosage: 200 MG IV, 5TH DOSE
     Route: 042
     Dates: start: 20230307, end: 20230307
  73. PEMBROLIZUMAB [Suspect]
     Active Substance: PEMBROLIZUMAB
     Dosage: 200 MG IV, 9 DOSE
     Route: 042
     Dates: start: 20230613, end: 20230613
  74. PEMBROLIZUMAB [Suspect]
     Active Substance: PEMBROLIZUMAB
     Dosage: 200 MG IV DOSE 6
     Route: 042
     Dates: start: 20230403, end: 20230403
  75. PEMBROLIZUMAB [Suspect]
     Active Substance: PEMBROLIZUMAB
     Dosage: 200 MG IV,8TH CYCLE
     Route: 042
     Dates: start: 20230523, end: 20230523
  76. PEMBROLIZUMAB [Suspect]
     Active Substance: PEMBROLIZUMAB
     Dosage: 200 MG, 2ND DOSE
     Route: 042
     Dates: start: 20221208, end: 20221208
  77. PEMBROLIZUMAB [Suspect]
     Active Substance: PEMBROLIZUMAB
     Dosage: 200 MG IV, 4TH DOSE
     Route: 042
     Dates: start: 20230210, end: 20230210
  78. PEMBROLIZUMAB [Suspect]
     Active Substance: PEMBROLIZUMAB
     Dosage: 200 MG IV, 7TH DOSE
     Route: 042
     Dates: start: 20230429, end: 20230429
  79. PEMBROLIZUMAB [Suspect]
     Active Substance: PEMBROLIZUMAB
     Dosage: 200 MILLIGRAM, 1SR DOSE
     Route: 042
     Dates: start: 20221122, end: 20221122
  80. PEMBROLIZUMAB [Suspect]
     Active Substance: PEMBROLIZUMAB
     Dosage: 200 MG, 3RD DOSE
     Route: 042
     Dates: start: 20230103, end: 20230103
  81. PEMBROLIZUMAB [Suspect]
     Active Substance: PEMBROLIZUMAB
     Dosage: 200 MG
     Route: 042
     Dates: start: 20220812, end: 20220812
  82. POTASSIUM CHLORIDE [Suspect]
     Active Substance: POTASSIUM CHLORIDE
     Indication: Product used for unknown indication
     Dosage: UNK
     Route: 065
     Dates: start: 20221122, end: 20221122
  83. POTASSIUM CHLORIDE [Suspect]
     Active Substance: POTASSIUM CHLORIDE
     Dosage: UNK
     Route: 065
     Dates: start: 20230307, end: 20230307
  84. POTASSIUM CHLORIDE [Suspect]
     Active Substance: POTASSIUM CHLORIDE
     Dosage: UNK
     Route: 065
     Dates: start: 20230523, end: 20230523
  85. POTASSIUM CHLORIDE [Suspect]
     Active Substance: POTASSIUM CHLORIDE
     Dosage: UNK
     Route: 065
     Dates: start: 20230429, end: 20230429
  86. POTASSIUM CHLORIDE [Suspect]
     Active Substance: POTASSIUM CHLORIDE
     Dosage: UNK
     Route: 065
     Dates: start: 20230210, end: 20230210
  87. POTASSIUM CHLORIDE [Suspect]
     Active Substance: POTASSIUM CHLORIDE
     Dosage: UNK
     Route: 065
     Dates: start: 20230103, end: 20230103
  88. DAPAGLIFLOZIN [Concomitant]
     Active Substance: DAPAGLIFLOZIN
     Indication: Product used for unknown indication
     Dosage: 10 MG 1 TABLET IN THE MORNING
     Route: 065

REACTIONS (36)
  - Anaemia [Recovering/Resolving]
  - Aortic stenosis [Unknown]
  - Atrial fibrillation [Unknown]
  - Lumbar vertebral fracture [Unknown]
  - Cardiac failure [Unknown]
  - Aortic valve calcification [Unknown]
  - Red cell distribution width increased [Unknown]
  - Eosinophil percentage decreased [Unknown]
  - Blood urea decreased [Unknown]
  - Blood chloride decreased [Unknown]
  - Pleural effusion [Unknown]
  - Lung infiltration [Unknown]
  - Asthenia [Unknown]
  - Blood creatine decreased [Unknown]
  - Blood magnesium decreased [Unknown]
  - Blood urea increased [Unknown]
  - Procalcitonin decreased [Unknown]
  - C-reactive protein increased [Unknown]
  - Pulmonary septal thickening [Unknown]
  - Left atrial dilatation [Unknown]
  - C-reactive protein decreased [Unknown]
  - Blood albumin decreased [Unknown]
  - Blood folate decreased [Unknown]
  - Eosinophil count decreased [Unknown]
  - White blood cell count increased [Unknown]
  - Platelet count decreased [Unknown]
  - Supraventricular extrasystoles [Unknown]
  - Oedema peripheral [Unknown]
  - Protein total decreased [Unknown]
  - Inappropriate schedule of product administration [Unknown]
  - Inappropriate schedule of product administration [Unknown]
  - Inappropriate schedule of product administration [Unknown]
  - Inappropriate schedule of product administration [Unknown]
  - Inappropriate schedule of product administration [Unknown]
  - Inappropriate schedule of product administration [Unknown]
  - Inappropriate schedule of product administration [Unknown]

NARRATIVE: CASE EVENT DATE: 20220101
